FAERS Safety Report 7235263-0 (Version None)
Quarter: 2011Q1

REPORT INFORMATION
  Report Type: 
  Country: None (occurrence: None)
  Receive Date: 20110120
  Receipt Date: 20110113
  Transmission Date: 20110831
  Serious: No
  Sender: FDA-Public Use
  Company Number: AU-JNJFOC-20110104702

PATIENT
  Sex: Female

DRUGS (1)
  1. DURAGESIC-100 [Suspect]
     Indication: ARTHRALGIA
     Route: 062

REACTIONS (8)
  - VOMITING [None]
  - HYPERHIDROSIS [None]
  - NAUSEA [None]
  - DIARRHOEA [None]
  - CHEST PAIN [None]
  - OVERDOSE [None]
  - ABDOMINAL PAIN UPPER [None]
  - TREATMENT NONCOMPLIANCE [None]
